FAERS Safety Report 6973157-6 (Version None)
Quarter: 2010Q3

REPORT INFORMATION
  Report Type: 
  Country: None (occurrence: None)
  Receive Date: 20100909
  Receipt Date: 20100831
  Transmission Date: 20110219
  Serious: Yes (Life-Threatening)
  Sender: FDA-Public Use
  Company Number: JP-ROCHE-686147

PATIENT
  Sex: Male
  Weight: 64 kg

DRUGS (3)
  1. ANEXATE [Suspect]
     Indication: REVERSAL OF SEDATION
     Route: 042
     Dates: start: 20090820, end: 20090820
  2. DORMICUM (INJ) [Concomitant]
     Route: 042
     Dates: start: 20090820, end: 20090820
  3. XYLOCAINE [Concomitant]
     Dates: start: 20090820, end: 20090820

REACTIONS (1)
  - LOSS OF CONSCIOUSNESS [None]
